FAERS Safety Report 11389915 (Version 2)
Quarter: 2015Q3

REPORT INFORMATION
  Report Type: Report from Study
  Country: JP (occurrence: JP)
  Receive Date: 20150818
  Receipt Date: 20150921
  Transmission Date: 20151125
  Serious: Yes (Hospitalization, Other)
  Sender: FDA-Public Use
  Company Number: JP-ROCHE-1442415

PATIENT
  Age: 84 Year
  Sex: Male

DRUGS (10)
  1. FLUITRAN [Concomitant]
     Active Substance: TRICHLORMETHIAZIDE
     Route: 048
  2. DIART [Concomitant]
     Active Substance: AZOSEMIDE
     Route: 048
  3. ALOSITOL [Concomitant]
     Active Substance: ALLOPURINOL
     Route: 048
     Dates: end: 20130925
  4. ARTIST [Concomitant]
     Active Substance: CARVEDILOL
     Route: 048
  5. SIGMART [Concomitant]
     Active Substance: NICORANDIL
     Route: 048
  6. TAKEPRON [Concomitant]
     Active Substance: LANSOPRAZOLE
     Route: 048
  7. NU-LOTAN [Concomitant]
     Active Substance: LOSARTAN POTASSIUM
     Route: 048
  8. METHOXY POLYETHYLENE GLYCOL-EPOETIN BETA [Suspect]
     Active Substance: METHOXY POLYETHYLENE GLYCOL-EPOETIN BETA
     Indication: NEPHROGENIC ANAEMIA
     Route: 058
     Dates: start: 20130731, end: 20150223
  9. BAYASPIRIN [Concomitant]
     Active Substance: ASPIRIN
     Route: 048
  10. ITOROL [Concomitant]
     Active Substance: ISOSORBIDE MONONITRATE
     Route: 048

REACTIONS (8)
  - Intestinal obstruction [Recovered/Resolved]
  - Hypertension [Unknown]
  - Hyperuricaemia [Recovering/Resolving]
  - Renal impairment [Unknown]
  - Cardiac failure congestive [Recovering/Resolving]
  - Anaemia [Recovered/Resolved]
  - Bronchitis [Recovered/Resolved]
  - C-reactive protein increased [Recovered/Resolved]

NARRATIVE: CASE EVENT DATE: 20131127
